FAERS Safety Report 18606804 (Version 1)
Quarter: 2020Q4

REPORT INFORMATION
  Report Type: Report from Study
  Country: AU (occurrence: AU)
  Receive Date: 20201211
  Receipt Date: 20201211
  Transmission Date: 20210114
  Serious: Yes (Hospitalization)
  Sender: FDA-Public Use
  Company Number: AU-JNJFOC-20201203791

PATIENT
  Age: 65 Year
  Sex: Male
  Weight: 72 kg

DRUGS (12)
  1. ACTRAPID INSULIN HUMAN [Concomitant]
     Indication: TYPE 1 DIABETES MELLITUS
     Dates: start: 2018
  2. COENZYME Q10 [Concomitant]
     Active Substance: DIETARY SUPPLEMENT\UBIDECARENONE
     Indication: VITAMIN SUPPLEMENTATION
     Dates: start: 2015
  3. CHLORINE DIOXIDE [Concomitant]
     Active Substance: CHLORINE DIOXIDE
     Indication: DRY MOUTH
     Dates: start: 202011
  4. ROSUVASTATIN. [Concomitant]
     Active Substance: ROSUVASTATIN
     Indication: HYPERCHOLESTEROLAEMIA
     Dates: start: 2010
  5. OMEGA 3 FISH OIL [FISH OIL] [Concomitant]
     Indication: VITAMIN SUPPLEMENTATION
     Dates: start: 2019
  6. SALIVA [Concomitant]
     Indication: DRY MOUTH
     Dates: start: 20201023
  7. CHLORINE DIOXIDE [Concomitant]
     Active Substance: CHLORINE DIOXIDE
     Indication: NASAL DRYNESS
  8. ZINC CREAM [Concomitant]
     Indication: PENILE RASH
     Dates: start: 20201125
  9. SALINE SPRAY [Concomitant]
     Active Substance: SODIUM CHLORIDE
     Indication: NASAL DRYNESS
     Dates: start: 20201015
  10. CHLORINE DIOXIDE [Concomitant]
     Active Substance: CHLORINE DIOXIDE
     Indication: GLOSSODYNIA
  11. ERDAFITINIB. [Suspect]
     Active Substance: ERDAFITINIB
     Indication: CHOLANGIOCARCINOMA
     Dosage: 8 MG TITRATED UP TO 9 MG (28-OCT-02DEC-2020), THEN RESTARTED AT 9 MG (09DEC)
     Route: 048
     Dates: start: 20201013, end: 20201027
  12. INSULIN [Concomitant]
     Active Substance: INSULIN NOS
     Indication: TYPE 1 DIABETES MELLITUS
     Dates: start: 197704

REACTIONS (2)
  - Rectal haemorrhage [Recovered/Resolved]
  - Diarrhoea [Recovered/Resolved]

NARRATIVE: CASE EVENT DATE: 20201202
